FAERS Safety Report 12566984 (Version 1)
Quarter: 2016Q3

REPORT INFORMATION
  Report Type: Spontaneous
  Country: US (occurrence: US)
  Receive Date: 20160718
  Receipt Date: 20160718
  Transmission Date: 20161109
  Serious: Yes (Other)
  Sender: FDA-Public Use
  Company Number: US-CELGENEUS-USA-2016020227

PATIENT
  Sex: Male
  Weight: 118.04 kg

DRUGS (3)
  1. HALOBETASOL PROPIONATE. [Concomitant]
     Active Substance: HALOBETASOL PROPIONATE
     Indication: PSORIASIS
     Route: 061
     Dates: start: 20151112
  2. OTEZLA [Suspect]
     Active Substance: APREMILAST
     Indication: PSORIASIS
     Dosage: TITRATE STARTER PACK
     Route: 048
     Dates: start: 20151112
  3. OTEZLA [Suspect]
     Active Substance: APREMILAST
     Dosage: .1 PERCENT
     Route: 048
     Dates: start: 20160620, end: 201607

REACTIONS (1)
  - Blood glucose increased [Recovered/Resolved]
